FAERS Safety Report 20694026 (Version 2)
Quarter: 2022Q2

REPORT INFORMATION
  Report Type: Report from Study
  Country: RU (occurrence: None)
  Receive Date: 20220411
  Receipt Date: 20220429
  Transmission Date: 20220721
  Serious: Yes (Hospitalization)
  Sender: FDA-Public Use
  Company Number: RU-ROCHE-2802662

PATIENT
  Age: 74 Year
  Sex: Male
  Weight: 67 kg

DRUGS (7)
  1. PLACEBO [Suspect]
     Active Substance: UNSPECIFIED INGREDIENT
     Indication: Non-small cell lung cancer
     Dosage: MOST RECENT DOSE RECEIVED PRIOR TO AE/SAE ON 09/MAR/2021
     Route: 042
     Dates: start: 20210309
  2. ATEZOLIZUMAB [Suspect]
     Active Substance: ATEZOLIZUMAB
     Indication: Non-small cell lung cancer
     Dosage: MOST RECENT DOSE RECEIVED PRIOR TO AE/SAE ON 09/MAR/2021 (1200 MG)
     Route: 041
     Dates: start: 20210309
  3. BISOPROLOL FUMARATE [Concomitant]
     Active Substance: BISOPROLOL FUMARATE
     Indication: Coronary artery disease
     Route: 048
     Dates: start: 2007
  4. ASPIRIN [Concomitant]
     Active Substance: ASPIRIN
     Indication: Coronary artery disease
     Route: 048
     Dates: start: 2015
  5. ISOSORBIDI DINITRAS [Concomitant]
     Indication: Hypertension
     Route: 048
     Dates: start: 20191217
  6. PANTOPRAZOLE SODIUM [Concomitant]
     Active Substance: PANTOPRAZOLE SODIUM
     Route: 048
     Dates: start: 20210330, end: 20210420
  7. SIDERAL [Concomitant]
     Route: 048
     Dates: start: 20210330, end: 20210420

REACTIONS (1)
  - Platelet count decreased [Recovered/Resolved with Sequelae]

NARRATIVE: CASE EVENT DATE: 20210330
